FAERS Safety Report 6704764-3 (Version None)
Quarter: 2010Q2

REPORT INFORMATION
  Report Type: 
  Country: None (occurrence: None)
  Receive Date: 20100430
  Receipt Date: 20091214
  Transmission Date: 20101027
  Serious: No
  Sender: FDA-Public Use
  Company Number: US-ASTRAZENECA-2009SE31888

PATIENT
  Age: 65 Year
  Sex: Female
  Weight: 74.8 kg

DRUGS (5)
  1. NEXIUM [Suspect]
     Indication: GASTROOESOPHAGEAL REFLUX DISEASE
     Route: 048
  2. LEVOXYL [Concomitant]
     Indication: THYROID DISORDER
  3. LISINOPRIL [Concomitant]
  4. CLONAZEPAM [Concomitant]
  5. ZETIA [Concomitant]

REACTIONS (4)
  - ARTERIAL OCCLUSIVE DISEASE [None]
  - DYSGEUSIA [None]
  - NAUSEA [None]
  - PRODUCT ODOUR ABNORMAL [None]
